FAERS Safety Report 19096638 (Version 2)
Quarter: 2021Q2

REPORT INFORMATION
  Report Type: Spontaneous
  Country: US (occurrence: US)
  Receive Date: 20210406
  Receipt Date: 20210518
  Transmission Date: 20210717
  Serious: Yes (Hospitalization)
  Sender: FDA-Public Use
  Company Number: US-PFIZER INC-2021334493

PATIENT
  Age: 40 Year
  Sex: Male

DRUGS (1)
  1. INLYTA [Suspect]
     Active Substance: AXITINIB
     Dosage: 5 MG, UNK
     Dates: start: 20210318, end: 20210507

REACTIONS (9)
  - Fatigue [Unknown]
  - Back pain [Unknown]
  - Constipation [Recovering/Resolving]
  - Heart rate increased [Unknown]
  - Dysphonia [Unknown]
  - Oropharyngeal pain [Recovering/Resolving]
  - Glossodynia [Unknown]
  - Haematuria [Unknown]
  - Product dose omission issue [Unknown]
